FAERS Safety Report 24647267 (Version 1)
Quarter: 2024Q4

REPORT INFORMATION
  Report Type: Report from Study
  Country: PT (occurrence: PT)
  Receive Date: 20241121
  Receipt Date: 20241121
  Transmission Date: 20250114
  Serious: Yes (Other)
  Sender: AMNEAL
  Company Number: PT-AMNEAL PHARMACEUTICALS-2024-AMRX-04244

PATIENT

DRUGS (6)
  1. ONGENTYS [Suspect]
     Active Substance: OPICAPONE
     Indication: Parkinson^s disease
     Dosage: 50 MILLIGRAM, QD (AT NIGHT)
     Route: 048
     Dates: start: 202406, end: 202406
  2. CARBIDOPA\LEVODOPA [Suspect]
     Active Substance: CARBIDOPA\LEVODOPA
     Indication: Parkinson^s disease
     Dosage: 20 MG + 5 MG, MORN:7CC;MAIN:UNK;EXTRA :3CC
     Dates: start: 2023, end: 202406
  3. CARBIDOPA\LEVODOPA [Suspect]
     Active Substance: CARBIDOPA\LEVODOPA
     Dosage: 20 MG + 5 MG, MORN:11.8CC;MAIN:4.9CC/H ;EXTRA:1CC
     Dates: start: 20230130, end: 2023
  4. CARBIDOPA\LEVODOPA [Suspect]
     Active Substance: CARBIDOPA\LEVODOPA
     Dosage: 20 MG + 5 MG, MORN:7CC;MAIN:UNK;EXTRA :3.5CC
     Dates: start: 202406
  5. ESCITALOPRAM OXALATE [Concomitant]
     Active Substance: ESCITALOPRAM OXALATE
     Indication: Product used for unknown indication
     Dosage: 0.5 TABLETS (OF 10 MILLIGRAMS), QD (IN THE MORNING)
     Route: 065
  6. BENSERAZIDE HYDROCHLORIDE\LEVODOPA [Concomitant]
     Active Substance: BENSERAZIDE HYDROCHLORIDE\LEVODOPA
     Indication: Parkinson^s disease
     Dosage: 2 TABLETS, BEDTIME
     Route: 065
     Dates: end: 202406

REACTIONS (4)
  - Skin laceration [Recovered/Resolved]
  - Freezing phenomenon [Recovered/Resolved]
  - Fall [Recovered/Resolved]
  - Dyskinesia [Recovering/Resolving]

NARRATIVE: CASE EVENT DATE: 20240601
